FAERS Safety Report 20642787 (Version 1)
Quarter: 2022Q1

REPORT INFORMATION
  Report Type: Spontaneous
  Country: HR (occurrence: HR)
  Receive Date: 20220328
  Receipt Date: 20220328
  Transmission Date: 20220423
  Serious: Yes (Other)
  Sender: FDA-Public Use
  Company Number: None

PATIENT
  Sex: Female

DRUGS (3)
  1. LAMICTAL [Suspect]
     Active Substance: LAMOTRIGINE
     Indication: Product used for unknown indication
     Dosage: UNK (UNK - ^A LOT^)
     Route: 048
     Dates: start: 20211201, end: 20211201
  2. OXAZEPAM [Suspect]
     Active Substance: OXAZEPAM
     Indication: Product used for unknown indication
     Dosage: UNK (UNK - ^A LOT^)
     Route: 048
     Dates: start: 20211201, end: 20211201
  3. VENLAFAXINE HYDROCHLORIDE [Suspect]
     Active Substance: VENLAFAXINE HYDROCHLORIDE
     Indication: Product used for unknown indication
     Dosage: UNK (UNK - ^A LOT^)
     Route: 048
     Dates: start: 20211201, end: 20211201

REACTIONS (5)
  - Respiratory depression [Unknown]
  - Slow response to stimuli [Unknown]
  - Suicide attempt [Unknown]
  - Somnolence [Unknown]
  - Intentional overdose [Unknown]

NARRATIVE: CASE EVENT DATE: 20211201
